FAERS Safety Report 9644717 (Version 1)
Quarter: 2013Q4

REPORT INFORMATION
  Report Type: Spontaneous
  Country: US (occurrence: US)
  Receive Date: 20131025
  Receipt Date: 20131025
  Transmission Date: 20140711
  Serious: Yes (Hospitalization)
  Sender: FDA-Public Use
  Company Number: PHEH2013US022241

PATIENT
  Sex: Female

DRUGS (6)
  1. SANDOSTATIN LAR DEPOT [Suspect]
     Indication: CARCINOID TUMOUR
     Dosage: UNK UKN, UNK
     Route: 030
  2. ALOPRIM [Concomitant]
     Dosage: UNK UKN, UNK
  3. METOPROLOL [Concomitant]
     Indication: CARDIAC DISORDER
     Dosage: UNK UKN, UNK
  4. LEVOTHYROXINE [Concomitant]
     Indication: THYROID DISORDER
     Dosage: UNK UKN, UNK
  5. AREDIA [Concomitant]
     Indication: BONE DISORDER
     Dosage: UNK UKN, UNK
  6. VITAMIN B12 [Concomitant]
     Dosage: UNK UKN, QMO

REACTIONS (1)
  - Dehydration [Unknown]
